FAERS Safety Report 13232173 (Version 2)
Quarter: 2017Q1

REPORT INFORMATION
  Report Type: Spontaneous
  Country: US (occurrence: US)
  Receive Date: 20170214
  Receipt Date: 20170214
  Transmission Date: 20170428
  Serious: Yes (Other)
  Sender: FDA-Public Use
  Company Number: US-BAYER-2017-020915

PATIENT
  Sex: Male
  Weight: 142.86 kg

DRUGS (2)
  1. KOGENATE FS [Suspect]
     Active Substance: ANTIHEMOPHILIC FACTOR, HUMAN RECOMBINANT
     Indication: FACTOR VIII DEFICIENCY
     Dosage: 1 DF, TREATMENT ( TOOK 1 DOSE TO INFUSE BLEED)
     Route: 042
  2. KOGENATE FS [Suspect]
     Active Substance: ANTIHEMOPHILIC FACTOR, HUMAN RECOMBINANT
     Indication: FACTOR VIII DEFICIENCY
     Dosage: 3000 U, INFUSE ~ 3000 UNITS (+/-10%) INTRAVENOUSLY AS NEEDED FOR BLEEDING
     Route: 042
     Dates: start: 201105

REACTIONS (1)
  - Haemarthrosis [Unknown]
